FAERS Safety Report 5784051-0 (Version None)
Quarter: 2008Q2

REPORT INFORMATION
  Report Type: 
  Country: None (occurrence: None)
  Receive Date: 20080605
  Receipt Date: 20080331
  Transmission Date: 20081010
  Serious: No
  Sender: FDA-Public Use
  Company Number: A0718248A

PATIENT
  Age: 35 Year
  Sex: Female

DRUGS (2)
  1. ALLI [Suspect]
     Dates: start: 20080321, end: 20080325
  2. EFFEXOR [Concomitant]

REACTIONS (5)
  - DIARRHOEA [None]
  - EYE SWELLING [None]
  - OEDEMA PERIPHERAL [None]
  - RASH [None]
  - VOMITING [None]
